FAERS Safety Report 14226230 (Version 9)
Quarter: 2019Q4

REPORT INFORMATION
  Report Type: Spontaneous
  Country: US (occurrence: US)
  Receive Date: 20171127
  Receipt Date: 20191031
  Transmission Date: 20200122
  Serious: Yes (Hospitalization, Other)
  Sender: FDA-Public Use
  Company Number: US-PFIZER INC-2017496719

PATIENT
  Age: 73 Year
  Sex: Male

DRUGS (10)
  1. GEMFIBROZIL. [Concomitant]
     Active Substance: GEMFIBROZIL
     Dosage: 600 MG, UNK
     Route: 048
  2. CORTISONE ACETATE. [Suspect]
     Active Substance: CORTISONE ACETATE
     Dosage: UNK
  3. LIDOCAINE HCL [Suspect]
     Active Substance: LIDOCAINE HYDROCHLORIDE
     Indication: TENDONITIS
     Dosage: UNK
     Route: 058
     Dates: start: 20170925
  4. MEPIVACAINE HCL [Suspect]
     Active Substance: MEPIVACAINE HYDROCHLORIDE
     Indication: PAIN
     Dosage: 1 ML, UNK
     Route: 058
     Dates: start: 20170925
  5. BETAMETHASONE ACETATE [Suspect]
     Active Substance: BETAMETHASONE ACETATE
     Indication: PAIN
     Dosage: UNK
     Route: 058
     Dates: start: 20170925
  6. LIDOCAINE HCL [Suspect]
     Active Substance: LIDOCAINE HYDROCHLORIDE
     Indication: PAIN
  7. OMEPRAZOLE. [Concomitant]
     Active Substance: OMEPRAZOLE
     Dosage: 20 MG, UNK
     Route: 048
  8. HYDROCHLOROTHIAZIDE-LISINOPRIL [Concomitant]
     Active Substance: HYDROCHLOROTHIAZIDE\LISINOPRIL
     Dosage: UNK [HYDROCHLOROTHIAZIDE: 12. 5MG/LISINOPRIL: 20 MG]
     Route: 048
  9. BETAMETHASONE ACETATE/BETAMETHASONE SODIUM PHOSPHATE [Suspect]
     Active Substance: BETAMETHASONE ACETATE\BETAMETHASONE SODIUM PHOSPHATE
     Indication: TENDONITIS
     Dosage: 0.5 ML, UNK
     Route: 058
     Dates: start: 20170925, end: 20170925
  10. BETAMETHASONE ACETATE/BETAMETHASONE SODIUM PHOSPHATE [Suspect]
     Active Substance: BETAMETHASONE ACETATE\BETAMETHASONE SODIUM PHOSPHATE
     Indication: PAIN
     Dosage: 0.5 ML, UNK
     Route: 058
     Dates: start: 20170925, end: 20170925

REACTIONS (6)
  - Abscess limb [Not Recovered/Not Resolved]
  - Inflammation [Unknown]
  - Skin ulcer [Recovering/Resolving]
  - Bacterial infection [Not Recovered/Not Resolved]
  - Mycobacterium chelonae infection [Recovered/Resolved with Sequelae]
  - Off label use [Unknown]

NARRATIVE: CASE EVENT DATE: 2017
